FAERS Safety Report 13779543 (Version 2)
Quarter: 2017Q3

REPORT INFORMATION
  Report Type: Spontaneous
  Country: JP (occurrence: JP)
  Receive Date: 20170721
  Receipt Date: 20170809
  Transmission Date: 20171127
  Serious: Yes (Life-Threatening, Other)
  Sender: FDA-Public Use
  Company Number: JP-GLAXOSMITHKLINE-JP2017JPN112413

PATIENT
  Age: 63 Year
  Sex: Female
  Weight: 48 kg

DRUGS (3)
  1. LAMICTAL [Suspect]
     Active Substance: LAMOTRIGINE
     Indication: EPILEPSY
     Dosage: 50 MG, QD
     Route: 048
     Dates: start: 20170609, end: 20170624
  2. HUMALOG [Concomitant]
     Active Substance: INSULIN LISPRO
     Dosage: UNK
  3. VOGLIBOSE [Concomitant]
     Active Substance: VOGLIBOSE
     Dosage: UNK

REACTIONS (4)
  - Mucous membrane disorder [Recovering/Resolving]
  - Drug reaction with eosinophilia and systemic symptoms [Recovered/Resolved]
  - Rash [Recovering/Resolving]
  - Oral disorder [Recovering/Resolving]

NARRATIVE: CASE EVENT DATE: 20170624
